FAERS Safety Report 17067797 (Version 1)
Quarter: 2019Q4

REPORT INFORMATION
  Report Type: Spontaneous
  Country: CA (occurrence: CA)
  Receive Date: 20191122
  Receipt Date: 20191122
  Transmission Date: 20200122
  Serious: Yes (Other)
  Sender: FDA-Public Use
  Company Number: CA-NOVOPROD-694012

PATIENT
  Age: 86 Year
  Sex: Female

DRUGS (1)
  1. NOVOLIN [Suspect]
     Active Substance: INSULIN HUMAN
     Indication: TYPE 2 DIABETES MELLITUS
     Dosage: UNK (STARTED 2-3 DAYS AGO,BEING GIVEN ONCE DAILY IN THE NURSING HOME)
     Route: 065
     Dates: start: 201910

REACTIONS (4)
  - Delirium [Unknown]
  - Hyperglycaemia [Unknown]
  - Hyperglycaemia [Not Recovered/Not Resolved]
  - Urinary tract infection [Not Recovered/Not Resolved]

NARRATIVE: CASE EVENT DATE: 201911
